FAERS Safety Report 5713709-4 (Version None)
Quarter: 2008Q2

REPORT INFORMATION
  Report Type: 
  Country: None (occurrence: None)
  Receive Date: 20080418
  Receipt Date: 20080409
  Transmission Date: 20081010
  Serious: Yes (Other)
  Sender: FDA-Public Use
  Company Number: GXKR2008GB03476

PATIENT
  Age: 75 Year
  Sex: Male
  Weight: 121 kg

DRUGS (1)
  1. CO-AMOXICLAV                  (AMOXICILLIN, CLAVULANATE) UNKNOWN [Suspect]
     Indication: LABYRINTHITIS
     Dosage: 1 DF, TID
     Dates: start: 20080301, end: 20080303

REACTIONS (3)
  - BLOOD PRESSURE INCREASED [None]
  - HEADACHE [None]
  - LYMPHADENOPATHY [None]
